FAERS Safety Report 25161717 (Version 1)
Quarter: 2025Q2

REPORT INFORMATION
  Report Type: Spontaneous
  Country: US (occurrence: US)
  Receive Date: 20250404
  Receipt Date: 20250404
  Transmission Date: 20250717
  Serious: No
  Sender: ABBVIE
  Company Number: US-ABBVIE-6206122

PATIENT

DRUGS (1)
  1. RINVOQ [Suspect]
     Active Substance: UPADACITINIB
     Indication: Product used for unknown indication
     Route: 048

REACTIONS (5)
  - Gait disturbance [Unknown]
  - Back disorder [Unknown]
  - Sciatica [Unknown]
  - Inflammatory bowel disease [Unknown]
  - Condition aggravated [Not Recovered/Not Resolved]
